FAERS Safety Report 8969558 (Version 1)
Quarter: 2012Q4

REPORT INFORMATION
  Report Type: 
  Country: TR (occurrence: TR)
  Receive Date: 20121218
  Receipt Date: 20121218
  Transmission Date: 20130627
  Serious: Yes (Other)
  Sender: FDA-Public Use
  Company Number: TR-AMGEN-TURSP2012079109

PATIENT
  Age: 41 Year
  Sex: Female

DRUGS (3)
  1. ENBREL [Suspect]
     Indication: ANKYLOSING SPONDYLITIS
     Dosage: 25 mg, 2x/week
     Route: 058
     Dates: start: 2006, end: 201203
  2. ENBREL [Suspect]
     Dosage: 25 mg, 2 times/wk
     Route: 058
     Dates: start: 20120309, end: 201206
  3. ENBREL [Suspect]
     Dosage: 25 mg, 2x/week
     Route: 058
     Dates: start: 201206, end: 201211

REACTIONS (6)
  - Lacrimation increased [Not Recovered/Not Resolved]
  - Pyrexia [Recovered/Resolved]
  - Hyperhidrosis [Recovered/Resolved]
  - Cough [Recovered/Resolved]
  - Uveitis [Not Recovered/Not Resolved]
  - Influenza [Recovered/Resolved]
